FAERS Safety Report 8427934-5 (Version None)
Quarter: 2012Q2

REPORT INFORMATION
  Report Type: 
  Country: None (occurrence: None)
  Receive Date: 20120611
  Receipt Date: 20120531
  Transmission Date: 20120825
  Serious: Yes (Life-Threatening, Hospitalization)
  Sender: FDA-Public Use
  Company Number: US-MYLANLABS-2012S1011286

PATIENT
  Age: 45 Year
  Sex: Male

DRUGS (7)
  1. DEPAKOTE [Concomitant]
  2. KLOR-CON [Concomitant]
  3. DITROPAN [Concomitant]
  4. CLOZAPINE [Suspect]
     Indication: BIPOLAR I DISORDER
     Dates: start: 20070101, end: 20110801
  5. LATUDA [Suspect]
     Indication: BIPOLAR I DISORDER
     Route: 048
     Dates: start: 20120510, end: 20120513
  6. CLOZAPINE [Suspect]
     Dates: start: 20110801, end: 20120513
  7. LASIX [Concomitant]

REACTIONS (11)
  - MEMORY IMPAIRMENT [None]
  - VOMITING [None]
  - TACHYCARDIA [None]
  - BLOOD CREATINE PHOSPHOKINASE INCREASED [None]
  - RESTLESSNESS [None]
  - HALLUCINATION, AUDITORY [None]
  - AGITATION [None]
  - NEUROLEPTIC MALIGNANT SYNDROME [None]
  - WHITE BLOOD CELL DISORDER [None]
  - CONFUSIONAL STATE [None]
  - IMPULSIVE BEHAVIOUR [None]
